FAERS Safety Report 16395546 (Version 1)
Quarter: 2019Q2

REPORT INFORMATION
  Report Type: Spontaneous
  Country: DE (occurrence: DE)
  Receive Date: 20190605
  Receipt Date: 20190605
  Transmission Date: 20190711
  Serious: Yes (Hospitalization, Other)
  Sender: FDA-Public Use
  Company Number: DE-MYLANLABS-2019M1051430

PATIENT
  Age: 47 Year
  Sex: Female
  Weight: 69 kg

DRUGS (1)
  1. AMLODIPINE [Suspect]
     Active Substance: AMLODIPINE BESYLATE
     Indication: PRODUCT USED FOR UNKNOWN INDICATION
     Dosage: 10 MG, 1-0-0
     Route: 048
     Dates: start: 20180202, end: 20180915

REACTIONS (7)
  - Vertigo [Recovering/Resolving]
  - Movement disorder [Recovering/Resolving]
  - Helplessness [Recovering/Resolving]
  - Retching [Recovering/Resolving]
  - Balance disorder [Recovering/Resolving]
  - Vomiting [Recovering/Resolving]
  - Meniere^s disease [Recovering/Resolving]

NARRATIVE: CASE EVENT DATE: 20180402
